FAERS Safety Report 18984030 (Version 3)
Quarter: 2021Q4

REPORT INFORMATION
  Report Type: Report from Study
  Country: None (occurrence: US)
  Receive Date: 20210309
  Receipt Date: 20211019
  Transmission Date: 20220303
  Serious: Yes (Hospitalization)
  Sender: FDA-Public Use
  Company Number: US-ABBVIE-21K-163-3753078-00

PATIENT
  Age: 76 Year
  Sex: Male

DRUGS (3)
  1. DUOPA [Suspect]
     Active Substance: CARBIDOPA\LEVODOPA
     Indication: Parkinson^s disease
     Dosage: MD:15 ML, ED: 2 ML
     Route: 050
     Dates: start: 20201119, end: 2021
  2. DUOPA [Suspect]
     Active Substance: CARBIDOPA\LEVODOPA
     Dosage: 4.63-20MG, MD: 2.0 ML, CD: 4.4 ML, ED: 2.0 ML
     Route: 050
     Dates: start: 2021, end: 20210819
  3. DUOPA [Suspect]
     Active Substance: CARBIDOPA\LEVODOPA
     Dosage: MD:2.0 ML, CD: 4.4 ML, ED: 2.0 ML
     Route: 050
     Dates: start: 20210915

REACTIONS (14)
  - Serratia sepsis [Recovered/Resolved]
  - Urinary tract infection [Recovered/Resolved]
  - Urinary retention [Not Recovered/Not Resolved]
  - Device dislocation [Recovered/Resolved]
  - Device occlusion [Recovered/Resolved]
  - Device kink [Unknown]
  - Device occlusion [Recovered/Resolved]
  - Incorrect dose administered [Unknown]
  - Feeling abnormal [Unknown]
  - Device programming error [Unknown]
  - Device occlusion [Unknown]
  - Wrong technique in product usage process [Recovered/Resolved]
  - Device difficult to use [Unknown]
  - Therapeutic product effect incomplete [Not Recovered/Not Resolved]

NARRATIVE: CASE EVENT DATE: 20210201
